FAERS Safety Report 16145626 (Version 1)
Quarter: 2019Q2

REPORT INFORMATION
  Report Type: Spontaneous
  Country: US (occurrence: US)
  Receive Date: 20190402
  Receipt Date: 20190402
  Transmission Date: 20190711
  Serious: Yes (Other)
  Sender: FDA-Public Use
  Company Number: US-ROCHE-2287293

PATIENT
  Age: 81 Year
  Sex: Male
  Weight: 77.63 kg

DRUGS (7)
  1. AVASTIN [Suspect]
     Active Substance: BEVACIZUMAB
     Indication: PRODUCT USED FOR UNKNOWN INDICATION
     Dosage: ONGOING:NO
     Route: 045
  2. TESTOSTERONE PELLET [Concomitant]
     Active Substance: TESTOSTERONE
     Route: 065
  3. SILDENAFIL. [Concomitant]
     Active Substance: SILDENAFIL
     Route: 065
  4. ANASTROZOLE. [Concomitant]
     Active Substance: ANASTROZOLE
     Route: 065
  5. PROPRANOLOL [Concomitant]
     Active Substance: PROPRANOLOL HYDROCHLORIDE
     Route: 065
  6. AVASTIN [Suspect]
     Active Substance: BEVACIZUMAB
     Indication: EPISTAXIS
     Dosage: FOR 4 CYCLES
     Route: 042
     Dates: start: 20190318
  7. LIDOCAINE. [Concomitant]
     Active Substance: LIDOCAINE
     Route: 061

REACTIONS (7)
  - Hypovolaemia [Unknown]
  - Blood pressure decreased [Unknown]
  - Nausea [Unknown]
  - Off label use [Unknown]
  - Hereditary haemorrhagic telangiectasia [Unknown]
  - Iron deficiency [Not Recovered/Not Resolved]
  - Intentional product use issue [Unknown]

NARRATIVE: CASE EVENT DATE: 20190318
